FAERS Safety Report 5048717-2 (Version None)
Quarter: 2006Q3

REPORT INFORMATION
  Report Type: 
  Country: None (occurrence: None)
  Receive Date: 20060705
  Receipt Date: 20060627
  Transmission Date: 20061208
  Serious: Yes (Death, Hospitalization)
  Sender: FDA-Public Use
  Company Number: HQWYE442628JUN06

PATIENT
  Age: 78 Year
  Sex: Male

DRUGS (8)
  1. ETODOLAC [Suspect]
     Indication: PAIN
     Dosage: 400 MG 1X PER 1 DAY ORAL
     Route: 048
     Dates: start: 20060525
  2. FAMOTIDINE [Concomitant]
  3. AMLODIPINE BESYLATE [Concomitant]
  4. ASPIRIN [Concomitant]
  5. MAGNESIUM OXIDE (MAGNESIUM OXIDE) [Concomitant]
  6. TAMSULOSIN HYDROCHLORIDE (TAMSULOSIN HYDROCHLORIDE) [Concomitant]
  7. ETIZOLAM (ETIZOLAM) [Concomitant]
  8. PANTETHINE (PANTETHINE) [Concomitant]

REACTIONS (1)
  - INTERSTITIAL LUNG DISEASE [None]
